FAERS Safety Report 22622083 (Version 1)
Quarter: 2023Q2

REPORT INFORMATION
  Report Type: Spontaneous
  Country: CN (occurrence: CN)
  Receive Date: 20230620
  Receipt Date: 20230620
  Transmission Date: 20230721
  Serious: Yes (Other)
  Sender: FDA-Public Use
  Company Number: CN-PFIZER INC-PV202300107815

PATIENT
  Age: 25 Year
  Sex: Female
  Weight: 81 kg

DRUGS (2)
  1. HEMABATE [Suspect]
     Active Substance: CARBOPROST TROMETHAMINE
     Indication: Threatened labour
     Dosage: 250 UG, 1X/DAY
     Route: 030
     Dates: start: 20230613, end: 20230613
  2. HEMABATE [Suspect]
     Active Substance: CARBOPROST TROMETHAMINE
     Indication: Uterine hypotonus

REACTIONS (4)
  - Cough [Recovered/Resolved]
  - Atrioventricular block [Recovered/Resolved]
  - Blood pressure increased [Recovered/Resolved]
  - Chest discomfort [Unknown]

NARRATIVE: CASE EVENT DATE: 20230613
